FAERS Safety Report 21672869 (Version 1)
Quarter: 2022Q4

REPORT INFORMATION
  Report Type: Spontaneous
  Country: US (occurrence: None)
  Receive Date: 20221201
  Receipt Date: 20221201
  Transmission Date: 20230113
  Serious: No
  Sender: FDA-Public Use
  Company Number: None

PATIENT
  Age: 33 Year
  Sex: Female

DRUGS (1)
  1. OPSUMIT [Suspect]
     Active Substance: MACITENTAN
     Indication: Pulmonary hypertension

REACTIONS (11)
  - Abdominal pain upper [None]
  - Chest pain [None]
  - Pyrexia [None]
  - Chills [None]
  - Hyperhidrosis [None]
  - Dyspnoea [None]
  - Abdominal distension [None]
  - Pancytopenia [None]
  - Periorbital cellulitis [None]
  - Blood alkaline phosphatase increased [None]
  - Blood bilirubin increased [None]

NARRATIVE: CASE EVENT DATE: 20221116
